FAERS Safety Report 6614657-8 (Version None)
Quarter: 2010Q1

REPORT INFORMATION
  Report Type: 
  Country: None (occurrence: None)
  Receive Date: 20100226
  Receipt Date: 20100215
  Transmission Date: 20100710
  Serious: Yes (Other)
  Sender: FDA-Public Use
  Company Number: 230004M10GBR

PATIENT
  Age: 62 Year
  Sex: Female

DRUGS (2)
  1. REBIF [Suspect]
     Indication: RELAPSING-REMITTING MULTIPLE SCLEROSIS
     Dosage: 22 MCG, 1 IN 1 WEEKS
  2. PREGABALIN [Suspect]
     Indication: PROCEDURAL PAIN
     Dosage: 3 IN 1 DAYS, ORAL
     Route: 048
     Dates: start: 20090901

REACTIONS (2)
  - LEUKOPENIA [None]
  - NEUTROPENIA [None]
